FAERS Safety Report 6459123-8 (Version None)
Quarter: 2009Q4

REPORT INFORMATION
  Report Type: 
  Country: None (occurrence: None)
  Receive Date: 20091127
  Receipt Date: 20091116
  Transmission Date: 20100525
  Serious: Yes (Death, Other)
  Sender: FDA-Public Use
  Company Number: JP-PFIZER INC-2009281430

PATIENT
  Age: 80 Year
  Sex: Male
  Weight: 43 kg

DRUGS (11)
  1. ZYVOX [Suspect]
     Indication: SEPSIS
     Dosage: 600 MG, 2X/DAY
     Route: 042
     Dates: start: 20080604, end: 20080611
  2. VANCOMYCIN HYDROCHLORIDE [Suspect]
     Indication: SEPSIS
     Dosage: 0.5 G, 1X/DAY
     Route: 042
     Dates: start: 20080516, end: 20080527
  3. VANCOMYCIN HYDROCHLORIDE [Suspect]
     Dosage: 0.5 G, 1X/DAY
     Route: 042
     Dates: start: 20080528, end: 20080528
  4. BIAPENEM [Suspect]
     Dosage: 0.3 G, 2X/DAY
     Route: 042
     Dates: start: 20080528, end: 20080604
  5. TARGOCID [Suspect]
     Indication: SEPSIS
     Dosage: FREQUENCY: 1X/DAY,
     Route: 042
     Dates: start: 20080528, end: 20080603
  6. FIRSTCIN [Suspect]
     Dosage: 1 G, 3X/DAY
     Route: 042
     Dates: start: 20080604, end: 20080604
  7. FIRSTCIN [Suspect]
     Dosage: 3 G, 1X/DAY
     Route: 042
     Dates: start: 20080605, end: 20080611
  8. ALOSITOL [Concomitant]
     Route: 048
     Dates: start: 20080522, end: 20080609
  9. NU LOTAN [Concomitant]
     Route: 048
     Dates: start: 20080522, end: 20080609
  10. LASIX [Concomitant]
     Route: 048
     Dates: start: 20080524, end: 20080609
  11. MEROPEN [Concomitant]
     Route: 042
     Dates: start: 20080517, end: 20080527

REACTIONS (3)
  - BLOOD CREATININE INCREASED [None]
  - BLOOD UREA INCREASED [None]
  - SEPSIS [None]
